FAERS Safety Report 9640118 (Version 1)
Quarter: 2013Q4

REPORT INFORMATION
  Report Type: Spontaneous
  Country: US (occurrence: US)
  Receive Date: 20131023
  Receipt Date: 20131023
  Transmission Date: 20140711
  Serious: No
  Sender: FDA-Public Use
  Company Number: US-PFIZER INC-2013297899

PATIENT
  Sex: Male

DRUGS (2)
  1. VIAGRA [Suspect]
     Dosage: UNK
  2. LEVITRA [Suspect]
     Dosage: UNK

REACTIONS (3)
  - Ocular hyperaemia [Unknown]
  - Nasal congestion [Unknown]
  - Drug effect incomplete [Unknown]
